FAERS Safety Report 4999483-8 (Version None)
Quarter: 2006Q2

REPORT INFORMATION
  Report Type: 
  Country: None (occurrence: None)
  Receive Date: 20060509
  Receipt Date: 20060509
  Transmission Date: 20061013
  Serious: Yes (Other)
  Sender: FDA-Public Use
  Company Number: None

PATIENT
  Sex: Female

DRUGS (3)
  1. OXYCONTIN [Suspect]
     Indication: BACK DISORDER
     Dosage: IV PO Q 8 HRS
     Route: 048
  2. OXYCONTIN [Suspect]
     Indication: INFLAMMATION
     Dosage: IV PO Q 8 HRS
     Route: 048
  3. OXYCONTIN [Suspect]
     Indication: POST LAMINECTOMY SYNDROME
     Dosage: IV PO Q 8 HRS
     Route: 048

REACTIONS (5)
  - AMNESIA [None]
  - PAIN [None]
  - PHARMACEUTICAL PRODUCT COMPLAINT [None]
  - RASH [None]
  - THERAPEUTIC RESPONSE UNEXPECTED WITH DRUG SUBSTITUTION [None]
